FAERS Safety Report 14981691 (Version 1)
Quarter: 2018Q2

REPORT INFORMATION
  Report Type: Spontaneous
  Country: US (occurrence: US)
  Receive Date: 20180607
  Receipt Date: 20180607
  Transmission Date: 20180711
  Serious: Yes (Other)
  Sender: FDA-Public Use
  Company Number: US-TORRENT-00005993

PATIENT
  Sex: Female
  Weight: 70 kg

DRUGS (6)
  1. IMITREX [Concomitant]
     Active Substance: SUMATRIPTAN SUCCINATE
     Indication: MIGRAINE
     Dosage: 1 TABLET BY MOUTH ONCE AS NEEDED FOR MIGRAINE
     Route: 048
  2. ASPIRIN. [Concomitant]
     Active Substance: ASPIRIN
     Indication: PRODUCT USED FOR UNKNOWN INDICATION
     Dosage: UNKNOWN
     Route: 048
  3. LEVETIRACETAM. [Suspect]
     Active Substance: LEVETIRACETAM
     Indication: SEIZURE
     Dosage: UNKNOWN
     Dates: start: 201403
  4. TOPAMAX [Concomitant]
     Active Substance: TOPIRAMATE
     Indication: PRODUCT USED FOR UNKNOWN INDICATION
     Dosage: 1 TABLET BY MOUTH EVERY EVENING
     Route: 048
  5. ZANTAC [Concomitant]
     Active Substance: RANITIDINE HYDROCHLORIDE
     Indication: PRODUCT USED FOR UNKNOWN INDICATION
     Dosage: 1 TABLET BY MOUTH 2 TIMES DAILY
     Route: 048
  6. PRILOSEC [Concomitant]
     Active Substance: OMEPRAZOLE MAGNESIUM
     Indication: PRODUCT USED FOR UNKNOWN INDICATION
     Dosage: 1 CAPSULE BY MOUTH 2 TIMES DAILY
     Route: 048

REACTIONS (12)
  - Lethargy [Unknown]
  - Impaired work ability [Unknown]
  - Balance disorder [Unknown]
  - Burning sensation [Unknown]
  - Seizure [Unknown]
  - Loss of consciousness [Unknown]
  - Nausea [Unknown]
  - Memory impairment [Unknown]
  - Decreased appetite [Unknown]
  - Drug ineffective [Unknown]
  - Fall [Unknown]
  - Dizziness [Unknown]
